FAERS Safety Report 5878177-0 (Version None)
Quarter: 2008Q3

REPORT INFORMATION
  Report Type: 
  Country: None (occurrence: None)
  Receive Date: 20080911
  Receipt Date: 20080904
  Transmission Date: 20090109
  Serious: Yes (Hospitalization)
  Sender: FDA-Public Use
  Company Number: PHHY2008JP17782

PATIENT
  Sex: Male

DRUGS (10)
  1. VOLTAREN [Suspect]
     Dosage: 25 MG, TID
     Route: 048
     Dates: start: 20080724
  2. NEUROTROPIN [Concomitant]
     Dosage: 3 DF
     Route: 048
     Dates: start: 20080724
  3. NEUROTROPIN [Concomitant]
     Dosage: 4 DF
     Route: 048
  4. MUCOSTA [Concomitant]
     Dosage: 300 MG
     Route: 048
     Dates: start: 20080724
  5. MUCOSTA [Concomitant]
     Dosage: 300 MG
     Route: 048
  6. KETOPROFEN [Concomitant]
     Dosage: UNK
     Dates: start: 20080724
  7. LOXONIN [Concomitant]
     Dosage: 180 MG/DAY
     Route: 048
     Dates: start: 20080801
  8. CYANOCOBALAMIN [Concomitant]
     Dosage: 1 MG/DAY
     Route: 048
     Dates: start: 20080801
  9. BETAMETHASONE [Concomitant]
     Dosage: 2 MG/DAY
     Dates: start: 20080801, end: 20080801
  10. XYLOCAIN [Concomitant]
     Dosage: 1 ML
     Dates: start: 20080801, end: 20080801

REACTIONS (14)
  - ALANINE AMINOTRANSFERASE INCREASED [None]
  - ASPARTATE AMINOTRANSFERASE INCREASED [None]
  - BENIGN SOFT TISSUE NEOPLASM [None]
  - BLOOD ALBUMIN DECREASED [None]
  - BLOOD CREATINE PHOSPHOKINASE INCREASED [None]
  - BLOOD LACTATE DEHYDROGENASE INCREASED [None]
  - BLOOD TRIGLYCERIDES INCREASED [None]
  - C-REACTIVE PROTEIN INCREASED [None]
  - GENERALISED OEDEMA [None]
  - INTERVERTEBRAL DISC PROTRUSION [None]
  - PERIARTHRITIS [None]
  - PROTEIN TOTAL DECREASED [None]
  - RENAL IMPAIRMENT [None]
  - WEIGHT INCREASED [None]
